FAERS Safety Report 7245098-0 (Version None)
Quarter: 2011Q1

REPORT INFORMATION
  Report Type: 
  Country: None (occurrence: None)
  Receive Date: 20110126
  Receipt Date: 20110117
  Transmission Date: 20110831
  Serious: Yes (Other)
  Sender: FDA-Public Use
  Company Number: FR-ASTRAZENECA-2011SE03352

PATIENT
  Sex: Female

DRUGS (2)
  1. ROCEPHIN [Concomitant]
     Route: 065
     Dates: start: 20101214, end: 20101221
  2. ENTOCORT EC [Suspect]
     Route: 048
     Dates: start: 20101123

REACTIONS (1)
  - ANGIOEDEMA [None]
